FAERS Safety Report 10285417 (Version 2)
Quarter: 2014Q3

REPORT INFORMATION
  Report Type: Spontaneous
  Country: JP (occurrence: JP)
  Receive Date: 20140708
  Receipt Date: 20140804
  Transmission Date: 20150326
  Serious: Yes (Hospitalization)
  Sender: FDA-Public Use
  Company Number: PHHY2014JP083209

PATIENT
  Age: 80 Year
  Sex: Female

DRUGS (1)
  1. METHOTREXATE (METHOTREXATE SODIUM) [Suspect]
     Active Substance: METHOTREXATE SODIUM
     Indication: RHEUMATOID ARTHRITIS
     Dosage: 2 MG, UNK
     Route: 048

REACTIONS (12)
  - Pancytopenia [Recovering/Resolving]
  - Accidental overdose [Recovering/Resolving]
  - Aphagia [Recovering/Resolving]
  - Oral mucosal erythema [Recovering/Resolving]
  - Aphthous stomatitis [Recovering/Resolving]
  - Bone marrow failure [Recovering/Resolving]
  - Interstitial lung disease [Recovering/Resolving]
  - Mucous membrane disorder [Recovering/Resolving]
  - Drug administration error [Unknown]
  - Influenza virus test positive [Recovering/Resolving]
  - Febrile neutropenia [Recovering/Resolving]
  - Stomatitis [Recovering/Resolving]
